FAERS Safety Report 14309574 (Version 1)
Quarter: 2017Q4

REPORT INFORMATION
  Report Type: Spontaneous
  Country: US (occurrence: US)
  Receive Date: 20171220
  Receipt Date: 20171220
  Transmission Date: 20180321
  Serious: No
  Sender: FDA-Public Use
  Company Number: US-AUSTARPHARMA, LLC-2037490

PATIENT
  Age: 78 Year
  Sex: Female
  Weight: 51.14 kg

DRUGS (3)
  1. ALENDRONATE SODIUM. [Suspect]
     Active Substance: ALENDRONATE SODIUM
     Indication: OSTEOPOROSIS
     Route: 048
     Dates: start: 20160519, end: 20160609
  2. FOSAMAX [Concomitant]
     Active Substance: ALENDRONATE SODIUM
  3. ACTONEL [Concomitant]
     Active Substance: RISEDRONATE SODIUM

REACTIONS (4)
  - Muscle twitching [None]
  - Bone pain [None]
  - Lethargy [None]
  - Weight increased [None]

NARRATIVE: CASE EVENT DATE: 20160610
